FAERS Safety Report 8125252-6 (Version None)
Quarter: 2012Q1

REPORT INFORMATION
  Report Type: 
  Country: None (occurrence: None)
  Receive Date: 20120206
  Receipt Date: 20120131
  Transmission Date: 20120608
  Serious: Yes (Hospitalization, Other)
  Sender: FDA-Public Use
  Company Number: ADR-2012-00235

PATIENT
  Age: 24 Year
  Sex: Male

DRUGS (1)
  1. BACLOFEN [Suspect]

REACTIONS (2)
  - POSTOPERATIVE WOUND COMPLICATION [None]
  - IMPAIRED HEALING [None]
